FAERS Safety Report 7563741-3 (Version None)
Quarter: 2011Q2

REPORT INFORMATION
  Report Type: 
  Country: None (occurrence: None)
  Receive Date: 20110622
  Receipt Date: 20110616
  Transmission Date: 20111010
  Serious: Yes (Hospitalization, Other)
  Sender: FDA-Public Use
  Company Number: ES-MERCK-1002ESP00026

PATIENT
  Age: 82 Year
  Sex: Female
  Weight: 85 kg

DRUGS (11)
  1. FUROSEMIDE [Concomitant]
     Route: 065
  2. CARBIDOPA AND LEVODOPA [Concomitant]
     Route: 065
  3. JANUMET [Suspect]
     Indication: TYPE 2 DIABETES MELLITUS
     Route: 048
     Dates: start: 20090622, end: 20090625
  4. RISEDRONATE SODIUM [Concomitant]
     Route: 065
  5. CARVEDILOL [Concomitant]
     Route: 065
  6. DIGOXIN [Concomitant]
     Route: 065
  7. ENALAPRIL MALEATE [Concomitant]
     Route: 065
  8. DIPYRONE [Concomitant]
     Route: 065
  9. NITROGLYCERIN [Concomitant]
     Route: 065
  10. ACENOCOUMAROL [Concomitant]
     Route: 065
  11. GLIMEPIRIDE [Concomitant]
     Route: 065

REACTIONS (6)
  - VISION BLURRED [None]
  - NEUROLOGICAL SYMPTOM [None]
  - SPEECH DISORDER [None]
  - ATAXIA [None]
  - DISORIENTATION [None]
  - HALLUCINATION [None]
